FAERS Safety Report 16649137 (Version 2)
Quarter: 2019Q3

REPORT INFORMATION
  Report Type: Spontaneous
  Country: US (occurrence: US)
  Receive Date: 20190730
  Receipt Date: 20190910
  Transmission Date: 20191004
  Serious: No
  Sender: FDA-Public Use
  Company Number: US-PFIZER INC-2019323878

PATIENT
  Age: 66 Year
  Sex: Female
  Weight: 79.38 kg

DRUGS (11)
  1. METFORMIN [Concomitant]
     Active Substance: METFORMIN HYDROCHLORIDE
     Dosage: UNK; (500)
     Dates: start: 2007
  2. WARFARIN [Concomitant]
     Active Substance: WARFARIN
     Dosage: 5 MG, DAILY (5MG MON/TUES/WED/THUR/FRI SUN)
     Dates: start: 201208
  3. LISINOPRIL. [Concomitant]
     Active Substance: LISINOPRIL
     Dosage: 40 MG, 1X/DAY
     Dates: start: 201209
  4. GLIMEPIRIDE. [Concomitant]
     Active Substance: GLIMEPIRIDE
     Dosage: 4 MG, 2X/DAY
     Dates: start: 2010
  5. ATORVASTATIN [Concomitant]
     Active Substance: ATORVASTATIN
     Dosage: 40 MG, 1X/DAY
     Dates: start: 201906
  6. WARFARIN [Concomitant]
     Active Substance: WARFARIN
     Dosage: UNK UNK, 1X/DAY; (2.5 ONLY ON SAT)
     Dates: start: 201209
  7. METOPROLOL TARTRATE. [Concomitant]
     Active Substance: METOPROLOL TARTRATE
     Dosage: 50 MG, 2X/DAY
     Dates: start: 201901
  8. LYRICA [Suspect]
     Active Substance: PREGABALIN
     Indication: DIABETIC NEPHROPATHY
     Dosage: 75 MG THREE TIMES A DAY (7:00 AM, 3:00PM, 11:00PM)
     Route: 048
     Dates: start: 201209
  9. LYRICA [Suspect]
     Active Substance: PREGABALIN
     Indication: PHANTOM LIMB SYNDROME
     Dosage: 75 MG, 3X/DAY (75MG 3XDAILY 7:AM, 3AM, 11PM)
     Route: 048
     Dates: start: 201209
  10. HYDROCHLOROTHIAZIDE. [Concomitant]
     Active Substance: HYDROCHLOROTHIAZIDE
     Dosage: UNK UNK, 1X/DAY
     Dates: start: 201901
  11. WARFARIN [Concomitant]
     Active Substance: WARFARIN
     Dosage: 2.5 MG, WEEKLY (2.5 ONLY ON SAT)
     Dates: start: 201209

REACTIONS (4)
  - Insomnia [Recovered/Resolved]
  - Blood pressure increased [Recovered/Resolved]
  - Feeling abnormal [Recovered/Resolved]
  - Stress [Recovered/Resolved]

NARRATIVE: CASE EVENT DATE: 201906
